FAERS Safety Report 5729591-5 (Version None)
Quarter: 2008Q2

REPORT INFORMATION
  Report Type: 
  Country: None (occurrence: None)
  Receive Date: 20080506
  Receipt Date: 20080428
  Transmission Date: 20081010
  Serious: Yes (Hospitalization, Other)
  Sender: FDA-Public Use
  Company Number: US-MERCK-0706USA00990

PATIENT
  Age: 68 Year
  Sex: Female

DRUGS (4)
  1. FOSAMAX [Suspect]
     Indication: OSTEOPOROSIS
     Route: 048
     Dates: start: 20010601, end: 20050101
  2. FOSAMAX [Suspect]
     Route: 048
     Dates: start: 19970908
  3. FOSAMAX PLUS D [Suspect]
     Indication: OSTEOPOROSIS
     Route: 048
  4. ACTONEL [Concomitant]
     Route: 065
     Dates: start: 20050628

REACTIONS (31)
  - ANAEMIA [None]
  - BACK INJURY [None]
  - BACK PAIN [None]
  - BRONCHITIS [None]
  - CARDIAC FAILURE [None]
  - CARDIAC FAILURE CONGESTIVE [None]
  - CATARACT [None]
  - CHEST PAIN [None]
  - DEPRESSION [None]
  - DIABETIC NEUROPATHY [None]
  - DIARRHOEA [None]
  - DIASTOLIC DYSFUNCTION [None]
  - FALL [None]
  - GASTROINTESTINAL HAEMORRHAGE [None]
  - HEAD INJURY [None]
  - HEPATIC STEATOSIS [None]
  - HYPEROXALURIA [None]
  - HYPOVOLAEMIA [None]
  - ONYCHOMYCOSIS [None]
  - OSTEOARTHRITIS [None]
  - PAIN IN EXTREMITY [None]
  - PAIN IN JAW [None]
  - PERIODIC LIMB MOVEMENT DISORDER [None]
  - PERIORBITAL HAEMATOMA [None]
  - PERIPHERAL VASCULAR DISORDER [None]
  - RENAL FAILURE [None]
  - SLEEP APNOEA SYNDROME [None]
  - SUBDURAL HAEMATOMA [None]
  - TOOTH LOSS [None]
  - TRISMUS [None]
  - URINARY INCONTINENCE [None]
